FAERS Safety Report 24121480 (Version 1)
Quarter: 2024Q3

REPORT INFORMATION
  Report Type: Spontaneous
  Country: US (occurrence: None)
  Receive Date: 20240719
  Receipt Date: 20240719
  Transmission Date: 20241017
  Serious: Yes (Other)
  Sender: Public
  Company Number: None

PATIENT
  Age: 70 Year
  Sex: Male
  Weight: 86.4 kg

DRUGS (1)
  1. CARVYKTI [Suspect]
     Active Substance: CILTACABTAGENE AUTOLEUCEL
     Indication: Plasma cell myeloma
     Dates: start: 20240429

REACTIONS (13)
  - Cytokine release syndrome [None]
  - Tremor [None]
  - Immune effector cell-associated neurotoxicity syndrome [None]
  - Haemoglobin decreased [None]
  - Loss of personal independence in daily activities [None]
  - Communication disorder [None]
  - Decreased interest [None]
  - Emotional disorder [None]
  - Staring [None]
  - Dysgraphia [None]
  - Parkinsonian rest tremor [None]
  - Cogwheel rigidity [None]
  - Movement disorder [None]

NARRATIVE: CASE EVENT DATE: 20240429
